FAERS Safety Report 5004598-4 (Version None)
Quarter: 2006Q2

REPORT INFORMATION
  Report Type: 
  Country: None (occurrence: None)
  Receive Date: 20060512
  Receipt Date: 20060503
  Transmission Date: 20061013
  Serious: Yes (Other)
  Sender: FDA-Public Use
  Company Number: 2006058999

PATIENT
  Sex: Male

DRUGS (1)
  1. BENADRYL [Suspect]
     Indication: EMOTIONAL DISORDER
     Dosage: 10 ULTRATABS ONCE, ORAL
     Route: 048
     Dates: start: 20060503, end: 20060503

REACTIONS (2)
  - INCORRECT DOSE ADMINISTERED [None]
  - SOMNOLENCE [None]
